FAERS Safety Report 22255393 (Version 2)
Quarter: 2023Q2

REPORT INFORMATION
  Report Type: Report from Study
  Country: US (occurrence: US)
  Receive Date: 20230426
  Receipt Date: 20230502
  Transmission Date: 20230722
  Serious: Yes (Other)
  Sender: FDA-Public Use
  Company Number: US-MYLANLABS-2023M1043976

PATIENT
  Age: 46 Year
  Sex: Male

DRUGS (2)
  1. CLOZAPINE [Suspect]
     Active Substance: CLOZAPINE
     Indication: Schizophrenia
     Dosage: 600 MILLIGRAM, BID (100MG Q AM AND 500 MG Q HS)
     Route: 065
     Dates: end: 20230126
  2. REMERON [Concomitant]
     Active Substance: MIRTAZAPINE
     Dosage: 60 MILLIGRAM, QD (Q HS)
     Route: 065

REACTIONS (2)
  - Neutropenia [Recovered/Resolved]
  - Platelet count decreased [Unknown]

NARRATIVE: CASE EVENT DATE: 20230124
